FAERS Safety Report 24377670 (Version 2)
Quarter: 2024Q4

REPORT INFORMATION
  Report Type: Spontaneous
  Country: IT (occurrence: IT)
  Receive Date: 20240930
  Receipt Date: 20241004
  Transmission Date: 20250115
  Serious: Yes (Other)
  Sender: AUROBINDO
  Company Number: IT-ELI_LILLY_AND_COMPANY-IT202409007849

PATIENT
  Age: 74 Year

DRUGS (6)
  1. CARBOPLATIN [Suspect]
     Active Substance: CARBOPLATIN
     Indication: Pleural mesothelioma malignant
     Dosage: UNK UNK, UNKNOWN
     Route: 065
     Dates: start: 20210506, end: 20210902
  2. CARBOPLATIN [Suspect]
     Active Substance: CARBOPLATIN
     Dosage: UNK UNK, UNKNOWN
     Route: 065
     Dates: start: 20240311, end: 20240830
  3. ALIMTA [Suspect]
     Active Substance: PEMETREXED DISODIUM
     Indication: Pleural mesothelioma malignant
     Dosage: UNK UNK, UNKNOWN
     Route: 065
     Dates: start: 20210506, end: 20210902
  4. ALIMTA [Suspect]
     Active Substance: PEMETREXED DISODIUM
     Dosage: UNK UNK, UNKNOWN
     Route: 065
     Dates: start: 20240311, end: 20240830
  5. IPILIMUMAB [Concomitant]
     Active Substance: IPILIMUMAB
     Indication: Pleural mesothelioma malignant
     Dosage: UNK
     Route: 065
     Dates: start: 20211110, end: 20240212
  6. NIVOLUMAB [Concomitant]
     Active Substance: NIVOLUMAB
     Indication: Pleural mesothelioma malignant
     Dosage: UNK
     Route: 065
     Dates: start: 20211110, end: 20240212

REACTIONS (1)
  - Malignant neoplasm progression [Unknown]
